FAERS Safety Report 6250352-5 (Version None)
Quarter: 2009Q2

REPORT INFORMATION
  Report Type: 
  Country: None (occurrence: None)
  Receive Date: 20090626
  Receipt Date: 20090626
  Transmission Date: 20091009
  Serious: Yes (Disabling)
  Sender: FDA-Public Use
  Company Number: None

PATIENT
  Age: 87 Year
  Sex: Female
  Weight: 58.9676 kg

DRUGS (8)
  1. LEVAQUIN [Suspect]
     Indication: SINUSITIS
     Dosage: 1 TABLET BY MOUTH DAILY
     Route: 048
     Dates: start: 20090527, end: 20090528
  2. VYTORIN [Concomitant]
  3. GLIMEPIRIDE [Concomitant]
  4. DETROL LA [Concomitant]
  5. METFORMIN HCL [Concomitant]
  6. OMEPRAZOLE [Concomitant]
  7. SYNTHROID [Concomitant]
  8. KLOR-CON [Concomitant]

REACTIONS (2)
  - ABASIA [None]
  - TENDONITIS [None]
